FAERS Safety Report 7869441-4 (Version None)
Quarter: 2011Q4

REPORT INFORMATION
  Report Type: 
  Country: None (occurrence: None)
  Receive Date: 20111027
  Receipt Date: 20111008
  Transmission Date: 20120403
  Serious: Yes (Hospitalization)
  Sender: FDA-Public Use
  Company Number: 2011AP002416

PATIENT
  Age: 45 Year
  Sex: Female

DRUGS (3)
  1. MYCOPHENOLATE MOFETIL [Suspect]
     Indication: IMMUNOSUPPRESSION
  2. PREDNISONE [Suspect]
     Indication: IMMUNOSUPPRESSION
  3. TACROLIMUS [Suspect]
     Indication: IMMUNOSUPPRESSION

REACTIONS (7)
  - HYPONATRAEMIA [None]
  - METABOLIC ACIDOSIS [None]
  - HYDRONEPHROSIS [None]
  - PYELONEPHRITIS [None]
  - HYDROURETER [None]
  - ENTEROBACTER INFECTION [None]
  - RENAL FAILURE ACUTE [None]
